FAERS Safety Report 18969218 (Version 1)
Quarter: 2021Q1

REPORT INFORMATION
  Report Type: Spontaneous
  Country: FR (occurrence: FR)
  Receive Date: 20210304
  Receipt Date: 20210304
  Transmission Date: 20210420
  Serious: Yes (Death, Hospitalization, Other)
  Sender: FDA-Public Use
  Company Number: FR-PFIZER INC-2021207771

PATIENT
  Age: 67 Year
  Sex: Male
  Weight: 89 kg

DRUGS (4)
  1. METHOTREXATE SODIUM. [Suspect]
     Active Substance: METHOTREXATE SODIUM
  2. CORTANCYL [Suspect]
     Active Substance: PREDNISONE
     Dosage: 20 MG
     Route: 048
  3. ARAVA [Concomitant]
     Active Substance: LEFLUNOMIDE
  4. KEVZARA [Suspect]
     Active Substance: SARILUMAB
     Indication: POLYARTHRITIS
     Route: 058

REACTIONS (11)
  - Febrile neutropenia [Fatal]
  - Torsade de pointes [Fatal]
  - Cardiac disorder [Unknown]
  - Febrile bone marrow aplasia [Unknown]
  - Sepsis [Unknown]
  - Electrocardiogram QT prolonged [Unknown]
  - Acute pulmonary oedema [Unknown]
  - Cardiac arrest [Unknown]
  - Respiratory distress [Unknown]
  - Cardio-respiratory arrest [Unknown]
  - Subcutaneous abscess [Unknown]
